FAERS Safety Report 8329877-4 (Version None)
Quarter: 2012Q2

REPORT INFORMATION
  Report Type: 
  Country: None (occurrence: None)
  Receive Date: 20120502
  Receipt Date: 20120424
  Transmission Date: 20120825
  Serious: Yes (Other)
  Sender: FDA-Public Use
  Company Number: DE-NAPPMUNDI-DEU-2012-0008874

PATIENT
  Age: 92 Year
  Sex: Female

DRUGS (1)
  1. BUPRENORPHINE [Suspect]
     Indication: CANCER PAIN
     Dosage: 20 MCG, Q1H
     Route: 062

REACTIONS (2)
  - NEOPLASM MALIGNANT [None]
  - INADEQUATE ANALGESIA [None]
